FAERS Safety Report 21817043 (Version 1)
Quarter: 2023Q1

REPORT INFORMATION
  Report Type: Report from Study
  Country: US (occurrence: US)
  Receive Date: 20230104
  Receipt Date: 20230104
  Transmission Date: 20230418
  Serious: No
  Sender: FDA-Public Use
  Company Number: US-ABBVIE-4217787

PATIENT
  Age: 40 Year
  Sex: Female

DRUGS (3)
  1. RINVOQ [Suspect]
     Active Substance: UPADACITINIB
     Indication: Product used for unknown indication
     Route: 048
  2. RINVOQ [Suspect]
     Active Substance: UPADACITINIB
     Indication: Product used for unknown indication
     Dates: start: 202211
  3. covid vaccine [Concomitant]
     Indication: COVID-19 immunisation
     Dosage: FIRST AND SECOND DOSE IN 2021

REACTIONS (3)
  - Acne cystic [Unknown]
  - Palpitations [Unknown]
  - Blood cholesterol increased [Unknown]

NARRATIVE: CASE EVENT DATE: 20221101
